FAERS Safety Report 8283899-0 (Version None)
Quarter: 2012Q2

REPORT INFORMATION
  Report Type: 
  Country: None (occurrence: None)
  Receive Date: 20120413
  Receipt Date: 20120405
  Transmission Date: 20120825
  Serious: Yes (Other)
  Sender: FDA-Public Use
  Company Number: GB-ELI_LILLY_AND_COMPANY-GB201203002734

PATIENT
  Sex: Male

DRUGS (2)
  1. BYDUREON [Suspect]
     Dosage: 2 MG, WEEKLY (1/W)
     Route: 058
     Dates: start: 20111219, end: 20120223
  2. DRUG USED IN DIABETES [Concomitant]

REACTIONS (3)
  - INJECTION SITE NODULE [None]
  - MALAISE [None]
  - BLOOD GLUCOSE INCREASED [None]
